FAERS Safety Report 5355928-5 (Version None)
Quarter: 2007Q2

REPORT INFORMATION
  Report Type: 
  Country: None (occurrence: None)
  Receive Date: 20070530
  Receipt Date: 20070309
  Transmission Date: 20071010
  Serious: Yes (Hospitalization)
  Sender: FDA-Public Use
  Company Number: US200702005150

PATIENT
  Age: 46 Year
  Sex: Male

DRUGS (4)
  1. ZYPREXA [Suspect]
     Indication: SCHIZOPHRENIA, PARANOID TYPE
     Dosage: SEE IMAGE
     Dates: start: 19970101, end: 20070201
  2. ZYPREXA [Suspect]
     Indication: SCHIZOPHRENIA, PARANOID TYPE
     Dosage: SEE IMAGE
     Dates: start: 20070201
  3. ZYPREXA [Suspect]
     Indication: SCHIZOPHRENIA, PARANOID TYPE
     Dosage: SEE IMAGE
     Dates: start: 20070201
  4. ZYPREXA ZYDIS [Concomitant]

REACTIONS (5)
  - AGITATION [None]
  - MALAISE [None]
  - NAUSEA [None]
  - SCHIZOPHRENIA [None]
  - SOMNOLENCE [None]
